FAERS Safety Report 5127030-9 (Version None)
Quarter: 2006Q4

REPORT INFORMATION
  Report Type: 
  Country: None (occurrence: None)
  Receive Date: 20061013
  Receipt Date: 20061010
  Transmission Date: 20070319
  Serious: Yes (Other)
  Sender: FDA-Public Use
  Company Number: IE-GLAXOSMITHKLINE-B0441837A

PATIENT
  Age: 31 Year
  Sex: Female

DRUGS (1)
  1. BECOTIDE [Suspect]
     Indication: ASTHMA
     Route: 055
     Dates: start: 20060801

REACTIONS (3)
  - ASTHMA [None]
  - DYSPEPSIA [None]
  - PHARMACEUTICAL PRODUCT COMPLAINT [None]
